FAERS Safety Report 5253317-5 (Version None)
Quarter: 2007Q1

REPORT INFORMATION
  Report Type: 
  Country: None (occurrence: None)
  Receive Date: 20070301
  Receipt Date: 20070216
  Transmission Date: 20070707
  Serious: Yes (Other)
  Sender: FDA-Public Use
  Company Number: PHRM2007FR00654

PATIENT
  Sex: Female
  Weight: 42 kg

DRUGS (8)
  1. CREON [Concomitant]
     Dosage: 7 CAP/DAY
     Route: 048
     Dates: start: 19970101
  2. EPHYNAL [Concomitant]
     Dosage: 2 TAB/DAY
     Route: 048
     Dates: start: 19970101
  3. PULMOZYME [Concomitant]
     Dosage: 2.5 MG, QD
     Dates: start: 20010101
  4. URSOLVAN-200 [Concomitant]
     Dosage: 400 MG/DAY
     Route: 048
     Dates: start: 20010101
  5. ZITHROMAX [Concomitant]
     Dosage: 500 MG/DAY
     Route: 048
     Dates: start: 20020101
  6. TOBI [Suspect]
     Indication: PSEUDOMONAS INFECTION
     Dosage: 300 MG, BID
     Dates: start: 20050511, end: 20061221
  7. FORTUM [Suspect]
     Indication: PSEUDOMONAS INFECTION
     Dosage: 400 MG/DAY
     Route: 042
  8. NEBCIN [Suspect]
     Indication: PSEUDOMONAS INFECTION
     Dosage: 4 G, BID
     Route: 042
     Dates: start: 20061004, end: 20061018

REACTIONS (2)
  - DRUG INTERACTION POTENTIATION [None]
  - HENOCH-SCHONLEIN PURPURA [None]
